FAERS Safety Report 14560287 (Version 2)
Quarter: 2018Q1

REPORT INFORMATION
  Report Type: Spontaneous
  Country: US (occurrence: US)
  Receive Date: 20180222
  Receipt Date: 20180305
  Transmission Date: 20180509
  Serious: No
  Sender: FDA-Public Use
  Company Number: US-SHIRE-US201806457

PATIENT
  Age: 69 Year
  Sex: Female

DRUGS (2)
  1. XIIDRA [Suspect]
     Active Substance: LIFITEGRAST
     Indication: DRY EYE
     Dosage: UNK
     Route: 065
     Dates: start: 20180215
  2. RESTASIS [Concomitant]
     Active Substance: CYCLOSPORINE
     Indication: DRY EYE

REACTIONS (7)
  - Instillation site pruritus [Not Recovered/Not Resolved]
  - Product container issue [Not Recovered/Not Resolved]
  - Drug ineffective [Unknown]
  - Instillation site reaction [Not Recovered/Not Resolved]
  - Dysgeusia [Not Recovered/Not Resolved]
  - Instillation site discharge [Not Recovered/Not Resolved]
  - Vision blurred [Not Recovered/Not Resolved]

NARRATIVE: CASE EVENT DATE: 20180215
